FAERS Safety Report 7905410-3 (Version None)
Quarter: 2011Q4

REPORT INFORMATION
  Report Type: 
  Country: None (occurrence: None)
  Receive Date: 20111109
  Receipt Date: 20111028
  Transmission Date: 20120403
  Serious: No
  Sender: FDA-Public Use
  Company Number: US-BAYER-2011-105832

PATIENT
  Sex: Female
  Weight: 68.027 kg

DRUGS (7)
  1. VITAMIN D [Concomitant]
     Dosage: 400 U, UNK
  2. BACLOFEN [Concomitant]
     Dosage: 10 MG, UNK
  3. MAGNESIUM [Concomitant]
     Dosage: 300 MG, UNK
  4. CYMBALTA [Concomitant]
     Dosage: 20 MG, UNK
  5. BETASERON [Suspect]
     Dosage: 1 ML, QOD
     Route: 058
  6. MELATONIN [Concomitant]
     Dosage: 3 MG, UNK
  7. NAPROXEN (ALEVE) [Concomitant]
     Dosage: 220 MG, UNK

REACTIONS (4)
  - INJECTION SITE REACTION [None]
  - INJECTION SITE PAIN [None]
  - INFLUENZA LIKE ILLNESS [None]
  - INJECTION SITE ERYTHEMA [None]
